FAERS Safety Report 5360953-4 (Version None)
Quarter: 2007Q2

REPORT INFORMATION
  Report Type: 
  Country: None (occurrence: None)
  Receive Date: 20070618
  Receipt Date: 20070606
  Transmission Date: 20071010
  Serious: Yes (Congenital Anomaly, Other)
  Sender: FDA-Public Use
  Company Number: PE-PFIZER INC-2007019155

PATIENT
  Sex: Male

DRUGS (1)
  1. SUTENT [Suspect]
     Indication: METASTATIC RENAL CELL CARCINOMA
     Route: 048

REACTIONS (5)
  - ARTHRITIS [None]
  - COUGH [None]
  - DYSPNOEA [None]
  - HYPERTENSION [None]
  - PULMONARY FIBROSIS [None]
